FAERS Safety Report 9899698 (Version 1)
Quarter: 2014Q1

REPORT INFORMATION
  Report Type: Spontaneous
  Country: US (occurrence: US)
  Receive Date: 20140214
  Receipt Date: 20140214
  Transmission Date: 20141002
  Serious: No
  Sender: FDA-Public Use
  Company Number: US-GILEAD-2011-0042620

PATIENT
  Sex: Female

DRUGS (13)
  1. LETAIRIS [Suspect]
     Indication: PULMONARY HYPERTENSION
     Route: 048
     Dates: start: 20110610, end: 201107
  2. LETAIRIS [Suspect]
     Route: 048
     Dates: start: 20110513, end: 20110610
  3. REVATIO [Concomitant]
  4. AMLODIPINE [Concomitant]
  5. SIMVASTATIN [Concomitant]
  6. ASPIRIN [Concomitant]
  7. HYDROXYCHLOROQUINE [Concomitant]
  8. METOCLOPRAMIDE [Concomitant]
  9. OMEPRAZOLE [Concomitant]
  10. MVI [Concomitant]
  11. CAD [Concomitant]
  12. CALCIUM [Concomitant]
  13. VITAMIN D [Concomitant]

REACTIONS (3)
  - Erythema [Recovering/Resolving]
  - Pain in extremity [Recovering/Resolving]
  - Oedema peripheral [Recovering/Resolving]
